FAERS Safety Report 10003774 (Version 3)
Quarter: 2014Q2

REPORT INFORMATION
  Report Type: Report from Study
  Country: DE (occurrence: DE)
  Receive Date: 20140312
  Receipt Date: 20140602
  Transmission Date: 20141212
  Serious: Yes (Hospitalization)
  Sender: FDA-Public Use
  Company Number: DE-CELGENEUS-062-21660-14024348

PATIENT
  Age: 68 Year
  Sex: Female
  Weight: 83 kg

DRUGS (4)
  1. ABRAXANE [Suspect]
     Indication: BREAST CANCER
     Route: 041
     Dates: start: 20140109, end: 20140224
  2. ABRAXANE [Suspect]
     Route: 041
     Dates: start: 20140313
  3. GEMCITABINE [Suspect]
     Indication: BREAST CANCER
     Route: 041
     Dates: start: 20140109, end: 20140224
  4. GEMCITABINE [Suspect]
     Route: 041
     Dates: start: 20140313

REACTIONS (1)
  - Dizziness [Recovered/Resolved]
